FAERS Safety Report 4886618-0 (Version None)
Quarter: 2006Q1

REPORT INFORMATION
  Report Type: 
  Country: None (occurrence: None)
  Receive Date: 20060119
  Receipt Date: 20060109
  Transmission Date: 20060701
  Serious: Yes (Hospitalization)
  Sender: FDA-Public Use
  Company Number: 032-63

PATIENT
  Age: 75 Year
  Sex: Male

DRUGS (5)
  1. TEVETEN [Suspect]
     Indication: HYPERTENSION
     Dosage: 600 MG QD PO
     Route: 048
     Dates: start: 20041011, end: 20050103
  2. HYTRIN [Suspect]
     Indication: HYPERTENSION
     Dosage: 10 MG QD PO
     Route: 048
     Dates: start: 20020221, end: 20050103
  3. PANTOPRAZOLE SODIUM [Concomitant]
  4. ACETYLSALICYLIC ACID [Concomitant]
  5. GINKO EXTRACT [Concomitant]

REACTIONS (3)
  - C-REACTIVE PROTEIN INCREASED [None]
  - HYPOTENSION [None]
  - SYNCOPE [None]
